FAERS Safety Report 20166833 (Version 1)
Quarter: 2021Q4

REPORT INFORMATION
  Report Type: Spontaneous
  Country: NL (occurrence: NL)
  Receive Date: 20211209
  Receipt Date: 20211209
  Transmission Date: 20220303
  Serious: Yes (Hospitalization, Other)
  Sender: FDA-Public Use
  Company Number: NL-BAYER-2021A261848

PATIENT
  Sex: Male

DRUGS (4)
  1. XOFIGO [Suspect]
     Active Substance: RADIUM RA-223 DICHLORIDE
     Dosage: UNK
  2. XOFIGO [Suspect]
     Active Substance: RADIUM RA-223 DICHLORIDE
     Dosage: UNK
     Dates: start: 20211130, end: 20211130
  3. DENOSUMAB [Concomitant]
     Active Substance: DENOSUMAB
     Indication: Metastases to bone
  4. WHOLE BLOOD [Concomitant]
     Active Substance: WHOLE BLOOD
     Indication: Haemoglobin decreased
     Dosage: 2 UNITS

REACTIONS (2)
  - Pathological fracture [None]
  - Fall [None]

NARRATIVE: CASE EVENT DATE: 20211125
